FAERS Safety Report 7648849-6 (Version None)
Quarter: 2011Q3

REPORT INFORMATION
  Report Type: 
  Country: None (occurrence: None)
  Receive Date: 20110801
  Receipt Date: 20110722
  Transmission Date: 20111222
  Serious: Yes (Hospitalization, Other)
  Sender: FDA-Public Use
  Company Number: US-ASTRAZENECA-2011SE44209

PATIENT
  Sex: Female

DRUGS (2)
  1. SINGULAIR [Concomitant]
  2. SYMBICORT [Suspect]
     Indication: CHRONIC OBSTRUCTIVE PULMONARY DISEASE
     Route: 055

REACTIONS (5)
  - FALL [None]
  - HEAD DISCOMFORT [None]
  - HEAD INJURY [None]
  - INCOHERENT [None]
  - TRANSIENT ISCHAEMIC ATTACK [None]
